FAERS Safety Report 23411929 (Version 1)
Quarter: 2024Q1

REPORT INFORMATION
  Report Type: Spontaneous
  Country: CN (occurrence: CN)
  Receive Date: 20240117
  Receipt Date: 20240117
  Transmission Date: 20240410
  Serious: Yes (Death, Life-Threatening, Hospitalization)
  Sender: FDA-Public Use
  Company Number: CN-PFIZER INC-PV202300203661

PATIENT
  Age: 5 Year
  Sex: Female

DRUGS (12)
  1. DEXAMETHASONE [Suspect]
     Active Substance: DEXAMETHASONE
     Indication: B precursor type acute leukaemia
     Dosage: INDUCTION CHEMOTHERAPY
     Route: 065
     Dates: start: 202103, end: 2021
  2. DEXAMETHASONE [Suspect]
     Active Substance: DEXAMETHASONE
     Dosage: RE-INDUCTION THERAPY (VDLD) USING PICC (PERIPHERALLY INSERTED CENTRAL CATHETER)
     Route: 042
     Dates: start: 20211221, end: 20211227
  3. DEXAMETHASONE [Suspect]
     Active Substance: DEXAMETHASONE
     Route: 037
     Dates: start: 20211221, end: 20211227
  4. DASATINIB [Suspect]
     Active Substance: DASATINIB
     Indication: B precursor type acute leukaemia
     Route: 048
     Dates: start: 20211221, end: 20211227
  5. DOXORUBICIN [Suspect]
     Active Substance: DOXORUBICIN
     Indication: B precursor type acute leukaemia
     Route: 065
     Dates: start: 202103, end: 2021
  6. DOXORUBICIN [Suspect]
     Active Substance: DOXORUBICIN
     Dosage: RE-INDUCTION THERAPY (VDLD) USING PICC (PERIPHERALLY INSERTED CENTRAL CATHETER)
     Route: 042
     Dates: start: 20211221, end: 20211227
  7. VINDESINE [Suspect]
     Active Substance: VINDESINE
     Indication: B precursor type acute leukaemia
     Route: 065
     Dates: start: 202103, end: 2021
  8. VINDESINE [Suspect]
     Active Substance: VINDESINE
     Dosage: RE-INDUCTION THERAPY (VDLD) USING PICC (PERIPHERALLY INSERTED CENTRAL CATHETER)
     Route: 042
     Dates: start: 20211221, end: 20211227
  9. CYTARABINE [Suspect]
     Active Substance: CYTARABINE
     Indication: B precursor type acute leukaemia
     Route: 037
     Dates: start: 20211221, end: 20211227
  10. METHOTREXATE [Suspect]
     Active Substance: METHOTREXATE
     Indication: B precursor type acute leukaemia
     Route: 037
     Dates: start: 20211221, end: 20211227
  11. PEGASPARGASE [Suspect]
     Active Substance: PEGASPARGASE
     Indication: B precursor type acute leukaemia
     Dosage: PEG-ASPARTASE
     Route: 065
     Dates: start: 202103, end: 2021
  12. PEGASPARGASE [Suspect]
     Active Substance: PEGASPARGASE
     Dosage: RE-INDUCTION THERAPY USING PICC (PERIPHERALLY INSERTED CENTRAL CATHETER)
     Route: 042
     Dates: start: 20211221, end: 20211227

REACTIONS (12)
  - Multiple organ dysfunction syndrome [Fatal]
  - Fusarium infection [Not Recovered/Not Resolved]
  - Endophthalmitis [Not Recovered/Not Resolved]
  - Encephalitis fungal [Not Recovered/Not Resolved]
  - Arthritis fungal [Not Recovered/Not Resolved]
  - Aortic thrombosis [Unknown]
  - Respiratory disorder [Unknown]
  - Extradural haematoma [Unknown]
  - Panophthalmitis [Not Recovered/Not Resolved]
  - Fungal endocarditis [Not Recovered/Not Resolved]
  - Ulcerative keratitis [Unknown]
  - Hypertension [Unknown]

NARRATIVE: CASE EVENT DATE: 20211201
